FAERS Safety Report 9493310 (Version 2)
Quarter: 2013Q3

REPORT INFORMATION
  Report Type: Report from Study
  Country: CZ (occurrence: CZ)
  Receive Date: 20130902
  Receipt Date: 20130902
  Transmission Date: 20140515
  Serious: Yes (Life-Threatening, Hospitalization)
  Sender: FDA-Public Use
  Company Number: PHHO2011CZ15011

PATIENT
  Age: 71 Year
  Sex: Male
  Weight: 69 kg

DRUGS (6)
  1. ALISKIREN [Suspect]
     Indication: CARDIOVASCULAR DISORDER
     Route: 048
     Dates: start: 20100828, end: 20110820
  2. TRITACE [Suspect]
     Indication: HYPERTENSION
     Dosage: 10 MG, UNK
     Dates: end: 20110820
  3. BETALOC [Concomitant]
     Indication: HYPERTENSION
     Dosage: 50 MG, UNK
  4. TENAXUM [Concomitant]
     Indication: HYPERTENSION
     Dosage: 17 MG, UNK
  5. ZOREM [Concomitant]
     Indication: HYPERTENSION
     Dosage: 10 MG, UNK
  6. FURON [Concomitant]
     Indication: HYPERTENSION
     Dosage: 40 MG, UNK

REACTIONS (2)
  - Hyperkalaemia [Recovered/Resolved]
  - Condition aggravated [Recovered/Resolved]
